FAERS Safety Report 16359636 (Version 4)
Quarter: 2020Q1

REPORT INFORMATION
  Report Type: Report from Study
  Country: JP (occurrence: JP)
  Receive Date: 20190528
  Receipt Date: 20200330
  Transmission Date: 20200409
  Serious: Yes (Hospitalization, Other)
  Sender: FDA-Public Use
  Company Number: JP-ROCHE-2307662

PATIENT
  Age: 77 Year
  Sex: Male
  Weight: 56 kg

DRUGS (1)
  1. ATEZOLIZUMAB. [Suspect]
     Active Substance: ATEZOLIZUMAB
     Indication: NON-SMALL CELL LUNG CANCER
     Route: 041
     Dates: start: 20190402, end: 20190402

REACTIONS (3)
  - Pancreatic enlargement [Recovering/Resolving]
  - Drug-induced liver injury [Recovering/Resolving]
  - Kidney enlargement [Recovering/Resolving]

NARRATIVE: CASE EVENT DATE: 20190413
